FAERS Safety Report 14271340 (Version 4)
Quarter: 2018Q1

REPORT INFORMATION
  Report Type: Spontaneous
  Country: US (occurrence: US)
  Receive Date: 20171211
  Receipt Date: 20180223
  Transmission Date: 20180508
  Serious: Yes (Hospitalization)
  Sender: FDA-Public Use
  Company Number: US-PFIZER INC-2017519208

PATIENT
  Age: 71 Year
  Sex: Female
  Weight: 87 kg

DRUGS (9)
  1. LYRICA [Suspect]
     Active Substance: PREGABALIN
     Indication: CONNECTIVE TISSUE DISORDER
     Dosage: 50 MG, DAILY
     Route: 048
     Dates: start: 20171101
  2. LYRICA [Suspect]
     Active Substance: PREGABALIN
     Indication: DISTURBANCE IN ATTENTION
  3. HYDROCODONE [Concomitant]
     Active Substance: HYDROCODONE
     Dosage: 500/325 MG (1-2 TIMES DAILY)
  4. LYRICA [Suspect]
     Active Substance: PREGABALIN
     Indication: LETHARGY
  5. XANAX [Concomitant]
     Active Substance: ALPRAZOLAM
     Indication: SLEEP DISORDER
     Dosage: ONE HALF TABLET (0.25 MG), AT BEDTIME AS NEEDED
     Route: 048
  6. LYRICA [Suspect]
     Active Substance: PREGABALIN
     Indication: FEELING ABNORMAL
  7. LYRICA [Suspect]
     Active Substance: PREGABALIN
     Indication: PAIN
  8. VICODIN [Concomitant]
     Active Substance: ACETAMINOPHEN\HYDROCODONE BITARTRATE
     Indication: PAIN
     Dosage: ONE TABLET, AS NEEDED (5MG/325 MG)
     Route: 048
  9. LYRICA [Suspect]
     Active Substance: PREGABALIN
     Indication: BACK PAIN
     Dosage: 50 MG DAILY
     Route: 048
     Dates: start: 20180101

REACTIONS (19)
  - Dry mouth [Not Recovered/Not Resolved]
  - Asthma [Recovered/Resolved]
  - Diarrhoea [Unknown]
  - Hair texture abnormal [Recovered/Resolved]
  - Cough [Not Recovered/Not Resolved]
  - Nasal oedema [Unknown]
  - Nasal dryness [Unknown]
  - Condition aggravated [Not Recovered/Not Resolved]
  - Discomfort [Unknown]
  - Constipation [Not Recovered/Not Resolved]
  - Dry throat [Unknown]
  - Condition aggravated [Recovered/Resolved]
  - Oropharyngeal pain [Unknown]
  - Sinus disorder [Unknown]
  - Memory impairment [Not Recovered/Not Resolved]
  - Nasopharyngitis [Recovering/Resolving]
  - Vision blurred [Not Recovered/Not Resolved]
  - Malaise [Not Recovered/Not Resolved]
  - Dry eye [Unknown]

NARRATIVE: CASE EVENT DATE: 201711
